FAERS Safety Report 5254356-0 (Version None)
Quarter: 2007Q1

REPORT INFORMATION
  Report Type: 
  Country: None (occurrence: None)
  Receive Date: 20070302
  Receipt Date: 20070220
  Transmission Date: 20070707
  Serious: Yes (Hospitalization)
  Sender: FDA-Public Use
  Company Number: US-JNJFOC-20070100081

PATIENT
  Sex: Female
  Weight: 68.04 kg

DRUGS (3)
  1. TOPAMAX [Suspect]
     Route: 048
  2. TOPAMAX [Suspect]
     Indication: MIGRAINE PROPHYLAXIS
     Route: 048
  3. CIPRO [Concomitant]
     Indication: URINARY TRACT INFECTION

REACTIONS (1)
  - HYPERCALCAEMIA [None]
